FAERS Safety Report 8967173 (Version 1)
Quarter: 2012Q4

REPORT INFORMATION
  Report Type: Report from Study
  Country: DE (occurrence: DE)
  Receive Date: 20121217
  Receipt Date: 20121217
  Transmission Date: 20130627
  Serious: Yes (Hospitalization)
  Sender: FDA-Public Use
  Company Number: DE-BAXTER-2012BAX026893

PATIENT
  Age: 68 Year
  Sex: Female
  Weight: 78 kg

DRUGS (4)
  1. ENDOXAN 1G [Suspect]
     Indication: NODULAR (FOLLICULAR) LYMPHOMA
     Route: 042
     Dates: start: 20081028, end: 20090216
  2. RITUXIMAB [Suspect]
     Indication: NODULAR (FOLLICULAR) LYMPHOMA
     Route: 042
     Dates: start: 20081027, end: 20090216
  3. RITUXIMAB [Suspect]
     Route: 042
     Dates: start: 20090302
  4. FLUDARABINE [Suspect]
     Indication: NODULAR (FOLLICULAR) LYMPHOMA
     Route: 042
     Dates: start: 20081028, end: 20090216

REACTIONS (3)
  - Febrile neutropenia [Recovered/Resolved]
  - Erysipelas [Recovered/Resolved]
  - Mucosal inflammation [Recovered/Resolved]
